FAERS Safety Report 11621663 (Version 1)
Quarter: 2015Q4

REPORT INFORMATION
  Report Type: Spontaneous
  Country: CA (occurrence: CA)
  Receive Date: 20151013
  Receipt Date: 20151013
  Transmission Date: 20160304
  Serious: Yes (Other)
  Sender: FDA-Public Use
  Company Number: CA-HOSPIRA-3031689

PATIENT
  Sex: Male

DRUGS (4)
  1. FENTANYL CITRATE. [Suspect]
     Active Substance: FENTANYL CITRATE
     Indication: PRODUCT USED FOR UNKNOWN INDICATION
     Route: 065
  2. MORPHINE SULPHATE [Suspect]
     Active Substance: MORPHINE SULFATE
     Indication: PRODUCT USED FOR UNKNOWN INDICATION
     Route: 065
  3. FENTANYL CITRATE. [Suspect]
     Active Substance: FENTANYL CITRATE
     Indication: PAIN
     Route: 065
  4. MORPHINE SULPHATE [Suspect]
     Active Substance: MORPHINE SULFATE
     Indication: PAIN
     Route: 065

REACTIONS (3)
  - Drug dependence [Unknown]
  - Drug diversion [Unknown]
  - Drug abuse [Unknown]
